FAERS Safety Report 4318858-3 (Version None)
Quarter: 2004Q1

REPORT INFORMATION
  Report Type: 
  Country: None (occurrence: None)
  Receive Date: 20040315
  Receipt Date: 20040227
  Transmission Date: 20041129
  Serious: Yes (Hospitalization)
  Sender: FDA-Public Use
  Company Number: 176652

PATIENT
  Age: 45 Year
  Sex: Female

DRUGS (2)
  1. AVONEX [Suspect]
     Indication: MULTIPLE SCLEROSIS
     Dosage: 30 MCG QW IM
     Route: 030
     Dates: start: 20020201
  2. BACLOFEN [Concomitant]

REACTIONS (22)
  - AMMONIA INCREASED [None]
  - ANOREXIA [None]
  - ASTHENIA [None]
  - BLOOD SODIUM INCREASED [None]
  - BODY TEMPERATURE DECREASED [None]
  - BRAIN MASS [None]
  - CHOLECYSTITIS CHRONIC [None]
  - CHOLELITHIASIS [None]
  - DRUG INEFFECTIVE [None]
  - FATIGUE [None]
  - GASTRITIS [None]
  - GLAUCOMA [None]
  - HYPOKALAEMIA [None]
  - INAPPROPRIATE ANTIDIURETIC HORMONE SECRETION [None]
  - LIVER FUNCTION TEST ABNORMAL [None]
  - NERVOUS SYSTEM DISORDER [None]
  - NUCLEAR MAGNETIC RESONANCE IMAGING ABNORMAL [None]
  - PEPTIC ULCER [None]
  - POST PROCEDURAL COMPLICATION [None]
  - SOMNOLENCE [None]
  - URINARY TRACT INFECTION [None]
  - WEIGHT DECREASED [None]
